FAERS Safety Report 7598540-X (Version None)
Quarter: 2011Q3

REPORT INFORMATION
  Report Type: 
  Country: None (occurrence: None)
  Receive Date: 20110708
  Receipt Date: 20110628
  Transmission Date: 20111222
  Serious: Yes (Other)
  Sender: FDA-Public Use
  Company Number: US-ELI_LILLY_AND_COMPANY-US201106008607

PATIENT
  Sex: Female

DRUGS (2)
  1. PREDNISONE [Concomitant]
     Dosage: UNK
  2. HUMULIN N [Suspect]
     Indication: DIABETES MELLITUS
     Dosage: UNK
     Dates: start: 20110401

REACTIONS (2)
  - CHRONIC OBSTRUCTIVE PULMONARY DISEASE [None]
  - DYSPNOEA [None]
